FAERS Safety Report 10395246 (Version 1)
Quarter: 2014Q3

REPORT INFORMATION
  Report Type: Spontaneous
  Country: US (occurrence: None)
  Receive Date: 20140819
  Receipt Date: 20140819
  Transmission Date: 20150326
  Serious: Yes (Other)
  Sender: FDA-Public Use
  Company Number: None

PATIENT
  Age: 6 Month
  Sex: Male
  Weight: 9 kg

DRUGS (1)
  1. ORAJEL [Suspect]
     Active Substance: ALLANTOIN\BENZOCAINE\CAMPHOR (NATURAL)\DIMETHICONE\MENTHOL
     Indication: TEETHING
     Dates: start: 20140716

REACTIONS (4)
  - Musculoskeletal stiffness [None]
  - Abnormal behaviour [None]
  - Dyspnoea [None]
  - Crying [None]

NARRATIVE: CASE EVENT DATE: 20140717
